FAERS Safety Report 8219912-6 (Version None)
Quarter: 2012Q1

REPORT INFORMATION
  Report Type: 
  Country: None (occurrence: None)
  Receive Date: 20120319
  Receipt Date: 20120305
  Transmission Date: 20120608
  Serious: Yes (Other)
  Sender: FDA-Public Use
  Company Number: SG-MYLANLABS-2012S1005118

PATIENT
  Age: 53 Year
  Sex: Female

DRUGS (7)
  1. SIMVASTATIN [Concomitant]
     Route: 065
  2. GABAPENTIN [Concomitant]
     Indication: TRIGEMINAL NEURALGIA
     Route: 065
  3. BACLOFEN [Concomitant]
     Indication: TRIGEMINAL NEURALGIA
     Route: 065
  4. TETANUS VACCINE [Concomitant]
     Route: 065
  5. PNEUMOCOCCAL VACCINE [Concomitant]
     Route: 065
  6. LAMOTRIGINE [Suspect]
     Indication: TRIGEMINAL NEURALGIA
     Route: 065
  7. IRBESARTAN [Concomitant]
     Route: 065

REACTIONS (1)
  - HYPOGAMMAGLOBULINAEMIA [None]
